FAERS Safety Report 24861435 (Version 3)
Quarter: 2025Q2

REPORT INFORMATION
  Report Type: Report from Study
  Country: CA (occurrence: CA)
  Receive Date: 20250120
  Receipt Date: 20250508
  Transmission Date: 20250717
  Serious: Yes (Hospitalization)
  Sender: SAMSUNG BIOEPIS
  Company Number: CA-SAMSUNG BIOEPIS-SB-2022-15349

PATIENT
  Age: 74 Year
  Sex: Male

DRUGS (5)
  1. ETANERCEPT [Suspect]
     Active Substance: ETANERCEPT
     Indication: Psoriasis
     Dosage: 50 MG/ML;
     Route: 058
     Dates: start: 20211215
  2. ETANERCEPT [Suspect]
     Active Substance: ETANERCEPT
     Dates: start: 20211215
  3. ETANERCEPT [Suspect]
     Active Substance: ETANERCEPT
     Dates: start: 20211215
  4. METHOTREXATE [Concomitant]
     Active Substance: METHOTREXATE
     Indication: Product used for unknown indication
  5. FOLIC ACID [Concomitant]
     Active Substance: FOLIC ACID
     Indication: Product used for unknown indication

REACTIONS (5)
  - Hospitalisation [Unknown]
  - Genital swelling [Unknown]
  - Cardiac valve disease [Unknown]
  - Immune system disorder [Unknown]
  - Scab [Unknown]
